FAERS Safety Report 6752473-7 (Version None)
Quarter: 2010Q2

REPORT INFORMATION
  Report Type: 
  Country: None (occurrence: None)
  Receive Date: 20100601
  Receipt Date: 20100601
  Transmission Date: 20101027
  Serious: Yes (Hospitalization)
  Sender: FDA-Public Use
  Company Number: None

PATIENT
  Age: 51 Year
  Sex: Male
  Weight: 89 kg

DRUGS (6)
  1. BELATACEPT 250 MG; 25 MG/ML BRISTOL-MYERS SQUIBB [Suspect]
     Indication: IMMUNOSUPPRESSION
     Dosage: 10 MG/KG IV
     Route: 042
     Dates: start: 20100224
  2. BELATACEPT 250 MG; 25 MG/ML BRISTOL-MYERS SQUIBB [Suspect]
     Indication: IMMUNOSUPPRESSION
     Dosage: 10 MG/KG IV
     Route: 042
     Dates: start: 20100226
  3. RAPAMUNE [Concomitant]
  4. JANUVIA [Concomitant]
  5. BACTRIM [Concomitant]
  6. VALCYTE [Concomitant]

REACTIONS (4)
  - BLOOD CREATINE DECREASED [None]
  - PAIN [None]
  - POLLAKIURIA [None]
  - PYREXIA [None]
